FAERS Safety Report 13668029 (Version 7)
Quarter: 2020Q1

REPORT INFORMATION
  Report Type: Spontaneous
  Country: US (occurrence: US)
  Receive Date: 20170620
  Receipt Date: 20200304
  Transmission Date: 20200409
  Serious: No
  Sender: FDA-Public Use
  Company Number: US-PFIZER INC-2017265049

PATIENT
  Age: 62 Year
  Sex: Male

DRUGS (4)
  1. SUTENT [Suspect]
     Active Substance: SUNITINIB MALATE
     Dosage: 50 MG, CYCLIC (1 CAPSULE DAILY FOR 4 WEEKS ON AND 2 WEEKS OFF)
     Route: 048
     Dates: start: 201601
  2. SUTENT [Suspect]
     Active Substance: SUNITINIB MALATE
     Dosage: 37.5 MG, CYCLIC (1 CAPSULE DAILY FOR 4 WEEKS ON AND 2 WEEKS OFF)
     Route: 048
     Dates: start: 201601
  3. SUTENT [Suspect]
     Active Substance: SUNITINIB MALATE
     Indication: GASTROINTESTINAL STROMAL TUMOUR
     Dosage: 50 MG, CYCLIC, (50 MG DAILY 4 WKS ON 2 WKS OFF)
     Route: 048
     Dates: start: 20151022
  4. HYDROCODONE [Suspect]
     Active Substance: HYDROCODONE
     Dosage: UNK

REACTIONS (5)
  - Fatigue [Unknown]
  - Contusion [Unknown]
  - Irritability [Unknown]
  - Anger [Unknown]
  - Product dose omission [Unknown]

NARRATIVE: CASE EVENT DATE: 201707
